FAERS Safety Report 15996119 (Version 3)
Quarter: 2022Q2

REPORT INFORMATION
  Report Type: Spontaneous
  Country: US (occurrence: US)
  Receive Date: 20190222
  Receipt Date: 20220509
  Transmission Date: 20220721
  Serious: Yes (Death)
  Sender: FDA-Public Use
  Company Number: US-MALLINCKRODT-T201901946

PATIENT

DRUGS (3)
  1. UVADEX [Suspect]
     Active Substance: METHOXSALEN
     Indication: Chronic graft versus host disease
     Dosage: UNK, 2 TIMES/WEEK FOR 4 WEEKS, EXTRACORPOREAL
     Route: 050
  2. UVADEX [Suspect]
     Active Substance: METHOXSALEN
     Dosage: UNK, TWO TREATMENT EVERY OTHER WEEK UNTIL WEEK 12, EXTRACORPOREAL
     Route: 050
  3. ALDESLEUKIN [Concomitant]
     Active Substance: ALDESLEUKIN
     Indication: Chronic graft versus host disease
     Dosage: UNK, DAILY FOR 12 WEEKS
     Route: 058

REACTIONS (2)
  - Sepsis [Fatal]
  - Product use in unapproved indication [Unknown]
